FAERS Safety Report 16381866 (Version 1)
Quarter: 2019Q2

REPORT INFORMATION
  Report Type: Spontaneous
  Country: US (occurrence: US)
  Receive Date: 20190603
  Receipt Date: 20190603
  Transmission Date: 20190711
  Serious: Yes (Other)
  Sender: FDA-Public Use
  Company Number: US-STRIDES ARCOLAB LIMITED-2019SP002699

PATIENT
  Age: 34 Year
  Sex: Male

DRUGS (2)
  1. RANITIDINE. [Suspect]
     Active Substance: RANITIDINE
     Indication: EPIGASTRIC DISCOMFORT
     Dosage: UNK, A FEW YEARS AGO
     Route: 065
  2. RANITIDINE. [Suspect]
     Active Substance: RANITIDINE
     Dosage: ONE TABLESPOON OF LIQUID RANITIDINE
     Route: 048

REACTIONS (8)
  - Rash [Recovered/Resolved]
  - Anaphylactic reaction [Unknown]
  - Throat tightness [Unknown]
  - Prescription drug used without a prescription [Unknown]
  - Chest discomfort [Unknown]
  - Dyspnoea [Recovered/Resolved]
  - Pruritus [Unknown]
  - Rash pruritic [Unknown]
